FAERS Safety Report 7092079-6 (Version None)
Quarter: 2010Q4

REPORT INFORMATION
  Report Type: 
  Country: None (occurrence: None)
  Receive Date: 20101109
  Receipt Date: 20101026
  Transmission Date: 20110411
  Serious: Yes (Hospitalization)
  Sender: FDA-Public Use
  Company Number: CA-US-EMD SERONO, INC.-7022049

PATIENT
  Sex: Male
  Weight: 74 kg

DRUGS (4)
  1. REBIF [Suspect]
     Indication: RELAPSING-REMITTING MULTIPLE SCLEROSIS
     Route: 058
     Dates: start: 20100218
  2. REBIF [Suspect]
     Route: 058
     Dates: start: 20100303
  3. REBIF [Suspect]
     Route: 058
     Dates: start: 20100317
  4. CRESTOR [Concomitant]
     Indication: HYPERLIPIDAEMIA
     Route: 048

REACTIONS (1)
  - MYOCARDIAL INFARCTION [None]
